FAERS Safety Report 9099424 (Version 3)
Quarter: 2013Q3

REPORT INFORMATION
  Report Type: Spontaneous
  Country: US (occurrence: US)
  Receive Date: 20130213
  Receipt Date: 20130916
  Transmission Date: 20140515
  Serious: Yes (Hospitalization)
  Sender: FDA-Public Use
  Company Number: US-B.I. PHARMACEUTICALS,INC./RIDGEFIELD-2013-BI-03929BP

PATIENT
  Age: 67 Year
  Sex: Female
  Weight: 64.86 kg

DRUGS (8)
  1. PRADAXA [Suspect]
     Indication: ATRIAL FIBRILLATION
     Dates: start: 20101209, end: 20110108
  2. PRADAXA [Suspect]
     Dates: start: 20110206, end: 20110227
  3. TERAZOSIN [Concomitant]
  4. CARVEDILOL [Concomitant]
  5. BENAZEPRIL [Concomitant]
  6. CLONIDINE [Concomitant]
  7. SORIATARIE [Concomitant]
  8. FUROSEMIDE [Concomitant]

REACTIONS (2)
  - Haemorrhagic anaemia [Unknown]
  - Upper gastrointestinal haemorrhage [Unknown]
